FAERS Safety Report 8785663 (Version 1)
Quarter: 2012Q4

REPORT INFORMATION
  Report Type: 
  Country: IE (occurrence: IE)
  Receive Date: 20120914
  Receipt Date: 20120914
  Transmission Date: 20130627
  Serious: Yes (Other)
  Sender: FDA-Public Use
  Company Number: IE-SANOFI-AVENTIS-2012SA056899

PATIENT
  Sex: Male

DRUGS (7)
  1. LANTUS [Suspect]
     Indication: DIABETES
     Dosage: 22-24 units mane
     Route: 058
  2. LANTUS SOLOSTAR [Suspect]
     Indication: DIABETES
     Dosage: 22-24 units mane: Dose
5-6 years prior to the report
     Route: 058
  3. SOLOSTAR [Suspect]
     Indication: DEVICE THERAPY
  4. CHOLESTEROL- AND TRIGLYCERIDE REDUCERS [Concomitant]
     Indication: CHOLESTEROL
  5. NOVORAPID [Concomitant]
     Dosage: Dose:52 unit(s)
     Dates: start: 1992
  6. PROTEIN SUPPLEMENTS [Concomitant]
  7. DILTIAZEM [Concomitant]
     Indication: HEART DISORDER

REACTIONS (1)
  - Diabetes mellitus inadequate control [Not Recovered/Not Resolved]
